FAERS Safety Report 9202998 (Version 1)
Quarter: 2013Q2

REPORT INFORMATION
  Report Type: Spontaneous
  Country: DE (occurrence: DE)
  Receive Date: 20130402
  Receipt Date: 20130402
  Transmission Date: 20140414
  Serious: Yes (Other)
  Sender: FDA-Public Use
  Company Number: DE-AMGEN-DEUSP2013021944

PATIENT
  Sex: Female

DRUGS (4)
  1. VECTIBIX [Suspect]
     Indication: COLORECTAL CANCER METASTATIC
     Dosage: UNK
  2. FOLINIC ACID [Concomitant]
     Indication: COLORECTAL CANCER METASTATIC
     Dosage: UNK
  3. FLUOROURACIL [Concomitant]
     Indication: COLORECTAL CANCER METASTATIC
     Dosage: UNK
  4. IRINOTECAN [Concomitant]
     Indication: COLORECTAL CANCER METASTATIC
     Dosage: UNK

REACTIONS (1)
  - Photosensitivity reaction [Unknown]
